FAERS Safety Report 17983049 (Version 1)
Quarter: 2020Q3

REPORT INFORMATION
  Report Type: Spontaneous
  Country: US (occurrence: US)
  Receive Date: 20200706
  Receipt Date: 20200706
  Transmission Date: 20201103
  Serious: No
  Sender: FDA-Public Use
  Company Number: US-PFIZER INC-2020256839

PATIENT
  Age: 48 Year
  Sex: Female

DRUGS (11)
  1. ASPIR LOW [Concomitant]
     Active Substance: ASPIRIN
     Dosage: UNK (81MG)
  2. LEVOTHYROXINE SODIUM. [Concomitant]
     Active Substance: LEVOTHYROXINE SODIUM
     Dosage: UNK (100MCG)
  3. LIPITOR [Concomitant]
     Active Substance: ATORVASTATIN CALCIUM
     Dosage: UNK (20MG)
  4. CARVEDILOL. [Concomitant]
     Active Substance: CARVEDILOL
     Dosage: UNK (6.25MG)
  5. PROBIOTIC ACIDOPHILUS [LACTOBACILLUS ACIDOPHILUS] [Concomitant]
     Dosage: UNK
  6. VITAMIN C [Concomitant]
     Active Substance: ASCORBIC ACID
     Dosage: UNK (1000MG)
  7. CALCIUM + D3 [CALCIUM CARBONATE;COLECALCIFEROL] [Concomitant]
     Dosage: UNK (CALCIUM + D3 200 MG?250 TABLET)
  8. VITAMIN D [COLECALCIFEROL] [Concomitant]
     Active Substance: CHOLECALCIFEROL
     Dosage: UNK (10MCG)
  9. METHOTREXATE. [Concomitant]
     Active Substance: METHOTREXATE
     Dosage: UNK (1G VIAL)
  10. XELJANZ XR [Suspect]
     Active Substance: TOFACITINIB CITRATE
     Indication: RHEUMATOID ARTHRITIS
     Dosage: 11 MG, DAILY
     Route: 048
     Dates: start: 202005, end: 202005
  11. MOBIC [Concomitant]
     Active Substance: MELOXICAM
     Dosage: UNK (15MG)

REACTIONS (3)
  - Paraesthesia [Recovered/Resolved]
  - Lip swelling [Recovered/Resolved]
  - Drug hypersensitivity [Recovered/Resolved]

NARRATIVE: CASE EVENT DATE: 202005
